FAERS Safety Report 21533182 (Version 5)
Quarter: 2024Q2

REPORT INFORMATION
  Report Type: Report from Study
  Country: US (occurrence: US)
  Receive Date: 20221101
  Receipt Date: 20240515
  Transmission Date: 20240716
  Serious: Yes (Other)
  Sender: FDA-Public Use
  Company Number: US-ABBVIE-4181642

PATIENT
  Sex: Male

DRUGS (4)
  1. IMBRUVICA [Suspect]
     Active Substance: IBRUTINIB
     Indication: Chronic lymphocytic leukaemia
     Dosage: TIME INTERVAL: 0.33333333 DAYS
     Route: 048
     Dates: start: 20221007, end: 20221203
  2. IMBRUVICA [Suspect]
     Active Substance: IBRUTINIB
     Indication: Chronic lymphocytic leukaemia
     Dosage: FORM STRENGTH: 140 MG
     Route: 048
     Dates: start: 202212
  3. IMBRUVICA [Suspect]
     Active Substance: IBRUTINIB
     Indication: Chronic lymphocytic leukaemia
     Dosage: LAST ADMIN DATE WAS 2022
     Route: 048
     Dates: start: 202209
  4. IMBRUVICA [Suspect]
     Active Substance: IBRUTINIB
     Indication: Chronic lymphocytic leukaemia
     Dosage: FORM STRENGTH: 140 MG
     Route: 048

REACTIONS (14)
  - Catheterisation cardiac [Unknown]
  - Chest pain [Unknown]
  - Pain in jaw [Unknown]
  - Myalgia [Unknown]
  - Muscle tightness [Unknown]
  - Crohn^s disease [Unknown]
  - White blood cell count decreased [Unknown]
  - Photopsia [Unknown]
  - Bone pain [Unknown]
  - Arthralgia [Recovering/Resolving]
  - Headache [Unknown]
  - Cardiac stress test abnormal [Unknown]
  - Renal impairment [Unknown]
  - Depressed mood [Unknown]
